FAERS Safety Report 6477494-3 (Version None)
Quarter: 2009Q4

REPORT INFORMATION
  Report Type: 
  Country: None (occurrence: None)
  Receive Date: 20091207
  Receipt Date: 20091118
  Transmission Date: 20100525
  Serious: Yes (Death, Life-Threatening)
  Sender: FDA-Public Use
  Company Number: US-SANOFI-AVENTIS-D01200903059

PATIENT
  Age: 82 Year
  Sex: Female
  Weight: 49 kg

DRUGS (14)
  1. ENOXAPARIN SODIUM [Suspect]
     Dosage: DOSE TEXT: 40 MG
     Route: 058
     Dates: start: 20090501, end: 20090502
  2. TOPROL-XL [Concomitant]
     Route: 048
     Dates: start: 20090430, end: 20090501
  3. PROTONIX [Concomitant]
     Route: 048
     Dates: start: 20090430, end: 20090502
  4. ZOFRAN [Concomitant]
     Route: 042
     Dates: start: 20090429, end: 20090502
  5. ACETAMINOPHEN AND OXYCODONE HCL [Concomitant]
     Dosage: DOSE TEXT: 5-325 MG 1-2 TAB OD
     Route: 048
     Dates: start: 20090501, end: 20090511
  6. NORMAL SALINE [Concomitant]
     Dosage: DOSE TEXT: 10 ML
     Route: 042
     Dates: start: 20090430, end: 20090430
  7. TYLENOL (CAPLET) [Concomitant]
     Dosage: DOSE TEXT: 500-1000MG
     Route: 048
     Dates: start: 20090501, end: 20090503
  8. AMITRIPTYLINE W/PERPHENAZINE [Concomitant]
     Dosage: DOSE TEXT: 10-2 MG
     Route: 050
     Dates: start: 20090430, end: 20090501
  9. DEXTROSE W/POTASSIUM CHLORIDE AND NACL [Concomitant]
     Dosage: DOSE TEXT: 50 ML
     Route: 042
     Dates: start: 20090429, end: 20090429
  10. MORPHINE [Concomitant]
     Dosage: DOSE TEXT: 2-4 MG
     Route: 042
     Dates: start: 20090429, end: 20090509
  11. ZESTRIL [Concomitant]
     Route: 048
     Dates: start: 20090430, end: 20090430
  12. PNEUMOCOCCAL POLYSACCHARIDE VACCINE [Concomitant]
     Route: 030
     Dates: start: 20090430, end: 20090430
  13. POTASSIUM CHLORIDE [Concomitant]
     Route: 048
     Dates: start: 20090430, end: 20090430
  14. PERCOCET [Concomitant]
     Route: 065
     Dates: start: 20090501

REACTIONS (10)
  - ACUTE RESPIRATORY FAILURE [None]
  - ATRIAL FIBRILLATION [None]
  - BLOOD PRESSURE DECREASED [None]
  - GENERALISED OEDEMA [None]
  - HAEMOGLOBIN DECREASED [None]
  - HYPOKALAEMIA [None]
  - ISCHAEMIC HEPATITIS [None]
  - ISCHAEMIC STROKE [None]
  - PNEUMONIA ASPIRATION [None]
  - UNRESPONSIVE TO STIMULI [None]
